FAERS Safety Report 4833272-X (Version None)
Quarter: 2005Q4

REPORT INFORMATION
  Report Type: 
  Country: None (occurrence: None)
  Receive Date: 20051121
  Receipt Date: 20051005
  Transmission Date: 20060501
  Serious: Yes (Hospitalization)
  Sender: FDA-Public Use
  Company Number: DE-BRISTOL-MYERS SQUIBB COMPANY-13134341

PATIENT
  Age: 57 Year
  Sex: Male

DRUGS (4)
  1. CETUXIMAB [Suspect]
     Indication: COLORECTAL CANCER METASTATIC
     Dosage: 1ST INFUSION. DRUG INTERRUPTED.
     Route: 042
     Dates: start: 20050916, end: 20050916
  2. IRINOTECAN HCL [Suspect]
     Indication: COLORECTAL CANCER METASTATIC
     Dosage: 1ST INFUSION.
     Route: 042
     Dates: start: 20050916, end: 20050916
  3. ENALAPRIL [Suspect]
     Indication: HYPERTENSION
     Dates: end: 20050916
  4. METOPROLOL [Suspect]
     Indication: HYPERTENSION
     Dosage: DOSE REDUCED TO 100 MG DAILY ON 17-SEP-2005
     Dates: end: 20050916

REACTIONS (1)
  - HYPOTENSION [None]
